FAERS Safety Report 5876915-4 (Version None)
Quarter: 2008Q3

REPORT INFORMATION
  Report Type: 
  Country: None (occurrence: None)
  Receive Date: 20080908
  Receipt Date: 20080825
  Transmission Date: 20090109
  Serious: Yes (Hospitalization)
  Sender: FDA-Public Use
  Company Number: 20085413

PATIENT
  Sex: Male

DRUGS (3)
  1. LIORESAL [Suspect]
     Indication: MUSCLE SPASTICITY
     Dosage: MCG, DAILY, INTRATHECAL
     Route: 037
  2. MORPHINE [Concomitant]
  3. ORAL BACLOFEN [Concomitant]

REACTIONS (17)
  - ABASIA [None]
  - CARDIAC DISORDER [None]
  - CONVULSION [None]
  - COUGH [None]
  - DRUG INEFFECTIVE [None]
  - DYSPNOEA [None]
  - FALL [None]
  - FEELING ABNORMAL [None]
  - LACRIMATION INCREASED [None]
  - LUNG DISORDER [None]
  - MALAISE [None]
  - MOVEMENT DISORDER [None]
  - PARAESTHESIA [None]
  - PARALYSIS [None]
  - SNEEZING [None]
  - SPEECH DISORDER [None]
  - VOMITING [None]
